FAERS Safety Report 18346786 (Version 1)
Quarter: 2020Q4

REPORT INFORMATION
  Report Type: Spontaneous
  Country: DE (occurrence: DE)
  Receive Date: 20201005
  Receipt Date: 20201005
  Transmission Date: 20210114
  Serious: Yes (Life-Threatening, Other)
  Sender: FDA-Public Use
  Company Number: DE-SA-2020SA273930

PATIENT

DRUGS (7)
  1. CETUXIMAB. [Concomitant]
     Active Substance: CETUXIMAB
     Dosage: 470 MG (11:00 TO 12:00)
     Route: 042
     Dates: start: 20200901
  2. OXALIPLATIN. [Suspect]
     Active Substance: OXALIPLATIN
     Dosage: 160 MG (IN 500 ML GLUCOSE 5% START: 12:30)
     Route: 042
     Dates: start: 20200901
  3. GRANISETRON [Concomitant]
     Active Substance: GRANISETRON
     Indication: PREMEDICATION
     Dosage: 2 MG (PREMEDICATION: DEXA, GRANISETRON, CLEMASTIN 500 ML NACL + 500 ML G5%)
     Route: 042
     Dates: start: 20200901
  4. CLEMASTINE [Concomitant]
     Active Substance: CLEMASTINE
     Indication: PREMEDICATION
     Dosage: 2 MG, PREMEDICATION: DEXA, GRANISETRON, CLEMASTIN 500 ML NACL + 500 ML G5%
     Route: 042
     Dates: start: 20200901
  5. DEXAMETASONA [DEXAMETHASONE] [Concomitant]
     Active Substance: DEXAMETHASONE
     Indication: PREMEDICATION
     Dosage: 8 MG (PREMEDICATION: DEXA, GRANISETRON, CLEMASTIN 500 ML NACL + 500 ML G5%)
     Route: 042
     Dates: start: 20200901
  6. GLUCOSE [Concomitant]
     Active Substance: DEXTROSE
     Dosage: 500 ML
     Route: 042
  7. NACL [Concomitant]
     Active Substance: SODIUM CHLORIDE
     Dosage: 500 MG
     Route: 042

REACTIONS (6)
  - Throat tightness [Unknown]
  - Adverse reaction [Unknown]
  - Paraesthesia [Unknown]
  - Loss of consciousness [Unknown]
  - Feeling hot [Unknown]
  - Dyspnoea [Unknown]

NARRATIVE: CASE EVENT DATE: 20200901
